FAERS Safety Report 24987164 (Version 1)
Quarter: 2025Q1

REPORT INFORMATION
  Report Type: Spontaneous
  Country: US (occurrence: None)
  Receive Date: 20250219
  Receipt Date: 20250219
  Transmission Date: 20250408
  Serious: Yes (Hospitalization)
  Sender: FDA-CTU
  Company Number: None

PATIENT
  Age: 56 Year
  Sex: Female
  Weight: 87.75 kg

DRUGS (2)
  1. MOUNJARO [Suspect]
     Active Substance: TIRZEPATIDE
     Indication: Diabetes mellitus
     Route: 030
  2. MOUNJARO [Suspect]
     Active Substance: TIRZEPATIDE
     Indication: Weight decreased

REACTIONS (9)
  - Hepatic pain [None]
  - Abdominal pain [None]
  - Jaundice [None]
  - Platelet disorder [None]
  - Bilirubin urine present [None]
  - Blood bilirubin abnormal [None]
  - Lymphadenopathy [None]
  - Decreased appetite [None]
  - Vomiting [None]

NARRATIVE: CASE EVENT DATE: 20250128
